FAERS Safety Report 9650064 (Version 1)
Quarter: 2013Q4

REPORT INFORMATION
  Report Type: Spontaneous
  Country: US (occurrence: US)
  Receive Date: 20131028
  Receipt Date: 20131028
  Transmission Date: 20140711
  Serious: No
  Sender: FDA-Public Use
  Company Number: US-PURDUE-USA-2012-0096454

PATIENT
  Sex: Female

DRUGS (4)
  1. OXYCONTIN (NDA 22-272) [Suspect]
     Indication: RHEUMATOID ARTHRITIS
     Dosage: 160 MG, BID
     Route: 048
     Dates: start: 200710
  2. PERCOCET                           /00867901/ [Concomitant]
     Indication: BREAKTHROUGH PAIN
     Dosage: 15 MG, (Q4-6HRS PRN)
     Route: 048
     Dates: start: 200710
  3. CYTOXAN [Concomitant]
     Indication: CHEMOTHERAPY
     Dosage: UNK
     Route: 042
  4. RITUXAN [Concomitant]
     Indication: RHEUMATOID ARTHRITIS
     Dosage: UNK, EVERY 2-3 MONTHS
     Route: 042

REACTIONS (1)
  - Inadequate analgesia [Not Recovered/Not Resolved]
